FAERS Safety Report 5321533-X (Version None)
Quarter: 2007Q1

REPORT INFORMATION
  Report Type: 
  Country: None (occurrence: None)
  Receive Date: 20070220
  Receipt Date: 20070110
  Transmission Date: 20070707
  Serious: No
  Sender: FDA-Public Use
  Company Number: TPA2007A00104

PATIENT
  Age: 80 Year
  Sex: Male

DRUGS (2)
  1. ROZEREM [Suspect]
     Dosage: PER ORAL
     Route: 048
  2. DILANTIN [Concomitant]

REACTIONS (2)
  - DRUG LEVEL INCREASED [None]
  - NAUSEA [None]
